FAERS Safety Report 7337276-7 (Version None)
Quarter: 2011Q1

REPORT INFORMATION
  Report Type: 
  Country: None (occurrence: None)
  Receive Date: 20110308
  Receipt Date: 20110224
  Transmission Date: 20110831
  Serious: Yes (Death, Hospitalization)
  Sender: FDA-Public Use
  Company Number: US-JNJFOC-20110301136

PATIENT
  Sex: Male
  Weight: 81 kg

DRUGS (25)
  1. ROXICODONE [Concomitant]
     Indication: PAIN
  2. LIDODERM [Concomitant]
     Route: 061
  3. ZAROXOLYN [Concomitant]
     Route: 048
  4. REMERON [Concomitant]
     Route: 048
  5. PRILOSEC [Concomitant]
     Route: 047
  6. FLOMAX [Concomitant]
     Route: 048
  7. VALACICLOVIR [Concomitant]
  8. REMICADE [Suspect]
     Indication: PRODUCT USED FOR UNKNOWN INDICATION
     Route: 042
  9. REMICADE [Suspect]
     Route: 042
  10. PREDNISONE [Concomitant]
  11. XANAX [Concomitant]
  12. BUMEX [Concomitant]
  13. SARNA [Concomitant]
     Route: 061
  14. OXYCONTIN [Concomitant]
     Indication: PAIN
     Route: 048
  15. DAPTOMYCIN [Concomitant]
     Indication: ENTEROCOCCAL BACTERAEMIA
  16. ATROPINE [Concomitant]
     Route: 047
  17. KENALOG [Concomitant]
     Route: 061
  18. REMICADE [Suspect]
     Route: 042
  19. LINEZOLID [Concomitant]
     Indication: ENTEROCOCCAL BACTERAEMIA
  20. ZOFRAN [Concomitant]
     Route: 048
  21. AKWA TEARS OPHTH [Concomitant]
     Route: 047
  22. REFRESH [Concomitant]
     Dosage: 1 DROP TO EACH EYE AS NEEDED 5-6 TIMES DAILY
     Route: 047
  23. MAALOX [Concomitant]
  24. REMICADE [Suspect]
     Route: 042
  25. GANCICLOVIR [Concomitant]

REACTIONS (12)
  - DEATH [None]
  - HYPONATRAEMIA [None]
  - AZOTAEMIA [None]
  - SALMONELLOSIS [None]
  - FEMUR FRACTURE [None]
  - CYTOMEGALOVIRUS INFECTION [None]
  - SALMONELLA BACTERAEMIA [None]
  - GRAFT VERSUS HOST DISEASE [None]
  - ENTEROCOCCAL BACTERAEMIA [None]
  - VERTEBROPLASTY [None]
  - SKIN INJURY [None]
  - RENAL FAILURE [None]
